FAERS Safety Report 12598620 (Version 1)
Quarter: 2016Q3

REPORT INFORMATION
  Report Type: Spontaneous
  Country: FI (occurrence: SE)
  Receive Date: 20160726
  Receipt Date: 20160726
  Transmission Date: 20161109
  Serious: Yes (Other)
  Sender: FDA-Public Use
  Company Number: FI-MYLANLABS-2016M1015945

PATIENT

DRUGS (1)
  1. ATENOLOL MYLAN [Suspect]
     Active Substance: ATENOLOL
     Indication: PRODUCT USED FOR UNKNOWN INDICATION
     Dosage: UNK
     Dates: start: 20160103

REACTIONS (7)
  - Alopecia [Unknown]
  - Oesophageal disorder [Unknown]
  - Weight increased [Unknown]
  - Syncope [Unknown]
  - Decreased appetite [Unknown]
  - Blood potassium decreased [Unknown]
  - Sjogren^s syndrome [Unknown]
